FAERS Safety Report 6588979-3 (Version None)
Quarter: 2010Q1

REPORT INFORMATION
  Report Type: 
  Country: None (occurrence: None)
  Receive Date: 20100218
  Receipt Date: 20100209
  Transmission Date: 20100710
  Serious: Yes (Hospitalization)
  Sender: FDA-Public Use
  Company Number: US-JNJCH-2010004019

PATIENT
  Age: 88 Year
  Sex: Female

DRUGS (5)
  1. ASPIRIN [Suspect]
     Indication: ARTHRITIS
     Dosage: TEXT:UNKNOWN
     Route: 048
  2. DISALCID [Suspect]
     Indication: ARTHRITIS
     Dosage: TEXT:1500MG TID
     Route: 048
  3. SUCRALFATE [Concomitant]
     Indication: DRUG USE FOR UNKNOWN INDICATION
     Dosage: TEXT:UNKNOWN
     Route: 065
  4. DOXEPIN HCL [Concomitant]
     Indication: DRUG USE FOR UNKNOWN INDICATION
     Dosage: TEXT:UNKNOWN
     Route: 065
  5. THYROID TAB [Concomitant]
     Indication: DRUG USE FOR UNKNOWN INDICATION
     Dosage: TEXT:UNKNOWN
     Route: 065

REACTIONS (2)
  - NIGHTMARE [None]
  - THERAPEUTIC AGENT TOXICITY [None]
